APPROVED DRUG PRODUCT: BUPRENORPHINE
Active Ingredient: BUPRENORPHINE
Strength: 10MCG/HR
Dosage Form/Route: FILM, EXTENDED RELEASE;TRANSDERMAL
Application: A210162 | Product #003
Applicant: MYLAN TECHNOLOGIES INC A VIATRIS CO
Approved: May 3, 2021 | RLD: No | RS: No | Type: DISCN